FAERS Safety Report 24349776 (Version 1)
Quarter: 2024Q3

REPORT INFORMATION
  Report Type: Report from Study
  Country: CA (occurrence: CA)
  Receive Date: 20240923
  Receipt Date: 20240923
  Transmission Date: 20241017
  Serious: No
  Sender: ROCHE
  Company Number: CA-ROCHE-3484670

PATIENT
  Sex: Male
  Weight: 62.0 kg

DRUGS (14)
  1. HERCEPTIN [Suspect]
     Active Substance: TRASTUZUMAB
     Indication: Colorectal cancer metastatic
     Route: 042
     Dates: start: 20231230
  2. HERCEPTIN [Suspect]
     Active Substance: TRASTUZUMAB
     Route: 042
  3. HERCEPTIN [Suspect]
     Active Substance: TRASTUZUMAB
     Route: 042
  4. PERJETA [Suspect]
     Active Substance: PERTUZUMAB
     Indication: Colorectal cancer metastatic
     Route: 042
     Dates: start: 20231230, end: 20231230
  5. PERJETA [Suspect]
     Active Substance: PERTUZUMAB
     Route: 042
     Dates: start: 20240120
  6. PERJETA [Suspect]
     Active Substance: PERTUZUMAB
     Route: 042
  7. APIXABAN [Concomitant]
     Active Substance: APIXABAN
  8. METOPROLOL [Concomitant]
     Active Substance: METOPROLOL
  9. MIRTAZAPINE [Concomitant]
     Active Substance: MIRTAZAPINE
  10. PRAVASTATIN [Concomitant]
     Active Substance: PRAVASTATIN
  11. RAMIPRIL [Concomitant]
     Active Substance: RAMIPRIL
  12. OXALIPLATIN [Concomitant]
     Active Substance: OXALIPLATIN
  13. DEXAMETHASONE [Concomitant]
     Active Substance: DEXAMETHASONE
     Indication: Cough
     Dosage: CANCER RELATED COUGH
  14. VENTOLIN [Concomitant]
     Active Substance: ALBUTEROL SULFATE
     Indication: Cough
     Dosage: INHALER

REACTIONS (3)
  - Off label use [Unknown]
  - Cough [Unknown]
  - Nasopharyngitis [Unknown]
